FAERS Safety Report 8073021-8 (Version None)
Quarter: 2012Q1

REPORT INFORMATION
  Report Type: 
  Country: None (occurrence: None)
  Receive Date: 20120126
  Receipt Date: 20120118
  Transmission Date: 20120608
  Serious: Yes (Disabling, Other)
  Sender: FDA-Public Use
  Company Number: US-ASTRAZENECA-2012SE03506

PATIENT
  Age: 37 Year
  Sex: Female
  Weight: 115.7 kg

DRUGS (3)
  1. PLAQUENIL [Concomitant]
     Indication: SYSTEMIC LUPUS ERYTHEMATOSUS
  2. NEXIUM [Suspect]
     Indication: GASTROOESOPHAGEAL REFLUX DISEASE
     Route: 048
     Dates: start: 20050101
  3. SYNTHROID [Concomitant]
     Indication: THYROID DISORDER

REACTIONS (3)
  - SYSTEMIC LUPUS ERYTHEMATOSUS [None]
  - FIBROMYALGIA [None]
  - IMPAIRED HEALING [None]
